FAERS Safety Report 22050672 (Version 1)
Quarter: 2023Q1

REPORT INFORMATION
  Report Type: Spontaneous
  Country: US (occurrence: US)
  Receive Date: 20230301
  Receipt Date: 20230301
  Transmission Date: 20230418
  Serious: Yes (Hospitalization)
  Sender: FDA-Public Use
  Company Number: US-TITAN PHARMACEUTICALS-2023TAN00032

PATIENT
  Age: 53 Year
  Sex: Male

DRUGS (4)
  1. BUPRENORPHINE\NALOXONE [Suspect]
     Active Substance: BUPRENORPHINE\NALOXONE
     Indication: Drug use disorder
     Dosage: 24 MG/6 MG DAILY
     Route: 048
  2. OLANZAPINE\SAMIDORPHAN [Suspect]
     Active Substance: OLANZAPINE\SAMIDORPHAN
     Dosage: 10MG/10MG; TAKEN IN THE EVENING
  3. SERTRALINE [Concomitant]
     Active Substance: SERTRALINE HYDROCHLORIDE
     Dosage: 100 MG, 1X/DAY
  4. AMITRIPTYLINE [Concomitant]
     Active Substance: AMITRIPTYLINE
     Dosage: 50 MG, 1X/DAY

REACTIONS (2)
  - Drug withdrawal syndrome [Recovered/Resolved]
  - Drug interaction [Recovered/Resolved]
